FAERS Safety Report 25425472 (Version 2)
Quarter: 2025Q3

REPORT INFORMATION
  Report Type: Report from Study
  Country: US (occurrence: US)
  Receive Date: 20250611
  Receipt Date: 20250810
  Transmission Date: 20251021
  Serious: Yes (Hospitalization)
  Sender: ALEXION PHARMACEUTICALS
  Company Number: US-AstraZeneca-CH-00887286A

PATIENT
  Sex: Male
  Weight: 89 kg

DRUGS (21)
  1. ACALABRUTINIB [Suspect]
     Active Substance: ACALABRUTINIB
     Indication: B-cell lymphoma
     Dosage: 100 MILLIGRAM, BID
     Dates: start: 20221015
  2. ASPIRIN [Concomitant]
     Active Substance: ASPIRIN
  3. ATORVASTATIN CALCIUM [Concomitant]
     Active Substance: ATORVASTATIN CALCIUM
  4. CETIRIZINE [Concomitant]
     Active Substance: CETIRIZINE HYDROCHLORIDE
  5. A. vitamiin b12 [Concomitant]
  6. FAMOTIDINE [Concomitant]
     Active Substance: FAMOTIDINE
  7. FINASTERIDE [Concomitant]
     Active Substance: FINASTERIDE
  8. OMEGA 3 [Concomitant]
     Active Substance: CAPSAICIN
  9. FLUTICASONE [Concomitant]
     Active Substance: FLUTICASONE
  10. LAMOTRIGINE [Concomitant]
     Active Substance: LAMOTRIGINE
  11. LYRICA [Concomitant]
     Active Substance: PREGABALIN
  12. MIRALAX [Concomitant]
     Active Substance: POLYETHYLENE GLYCOL 3350
  13. VITAMINS [Concomitant]
     Active Substance: VITAMINS
  14. NITROFURANTOIN [Concomitant]
     Active Substance: NITROFURANTOIN
  15. NITROGLYCERIN [Concomitant]
     Active Substance: NITROGLYCERIN
  16. ONDANSETRON [Concomitant]
     Active Substance: ONDANSETRON
  17. PEPCID [Concomitant]
     Active Substance: FAMOTIDINE
     Route: 065
  18. RETACRIT [Concomitant]
     Active Substance: EPOETIN ALFA-EPBX
     Route: 065
  19. TAMSULOSIN [Concomitant]
     Active Substance: TAMSULOSIN
  20. TIMOLOL [Concomitant]
     Active Substance: TIMOLOL
  21. HERBALS\TURMERIC [Concomitant]
     Active Substance: HERBALS\TURMERIC

REACTIONS (1)
  - Myocardial infarction [Unknown]
